FAERS Safety Report 4860988-1 (Version None)
Quarter: 2005Q4

REPORT INFORMATION
  Report Type: 
  Country: None (occurrence: None)
  Receive Date: 20051220
  Receipt Date: 20050714
  Transmission Date: 20060501
  Serious: Yes (Death)
  Sender: FDA-Public Use
  Company Number: PHFR2005GB02469

PATIENT
  Age: 62 Year
  Sex: Female

DRUGS (14)
  1. ZOMETA [Suspect]
     Indication: HYPERCALCAEMIA
     Dosage: 4MG PER DAY
     Dates: start: 20050713, end: 20050713
  2. HALOPERIDOL [Concomitant]
     Indication: NAUSEA
     Dosage: 1.5MG PER DAY
     Route: 048
     Dates: start: 20050713
  3. HALOPERIDOL [Concomitant]
     Dosage: 0.5 MG/DAY
     Route: 058
     Dates: start: 20050714, end: 20050714
  4. ORAMORPH SR [Concomitant]
     Indication: PAIN
     Dosage: 20MG PER DAY
     Route: 048
     Dates: start: 20050713, end: 20050714
  5. NYSTATIN [Concomitant]
     Indication: ORAL CANDIDIASIS
     Dosage: ONE DOSE
     Route: 002
     Dates: start: 20050713, end: 20050713
  6. DEXAMETHASONE [Concomitant]
     Indication: CHEMOTHERAPY
     Dosage: 4 MG + 2MG PER DAY
     Route: 048
     Dates: start: 20050401, end: 20050713
  7. TRAMADOL HCL [Concomitant]
     Indication: PAIN
     Dosage: 200MG PER DAY
     Route: 048
     Dates: end: 20050713
  8. BENDROFLUAZIDE [Concomitant]
     Indication: HYPERTENSION
     Dosage: 2.5 MG, QD
     Route: 048
     Dates: end: 20050713
  9. ASPIRIN [Concomitant]
     Indication: CEREBROVASCULAR ACCIDENT PROPHYLAXIS
     Dosage: 75MG PER DAY
     Route: 048
     Dates: end: 20050713
  10. METOCLOPRAMIDE [Concomitant]
     Indication: PAIN
     Dosage: 10 MG, TID
     Route: 048
     Dates: end: 20050713
  11. MOVICOL [Concomitant]
     Route: 048
  12. AMLODIPINE [Concomitant]
     Route: 065
     Dates: start: 20040301
  13. CYCLIZINE [Concomitant]
     Dosage: 50 MG, ONCE/SINGLE
     Route: 058
     Dates: start: 20050714, end: 20050714
  14. HALOPERIDOL [Concomitant]
     Dosage: 0.5 MG/DAY
     Route: 058
     Dates: start: 20050714, end: 20050714

REACTIONS (3)
  - BRADYCARDIA [None]
  - MALIGNANT NEOPLASM PROGRESSION [None]
  - SMALL CELL LUNG CANCER STAGE UNSPECIFIED [None]
